FAERS Safety Report 6049465-2 (Version None)
Quarter: 2009Q1

REPORT INFORMATION
  Report Type: 
  Country: None (occurrence: None)
  Receive Date: 20090116
  Receipt Date: 20081231
  Transmission Date: 20090719
  Serious: Yes (Hospitalization)
  Sender: FDA-Public Use
  Company Number: 8040488

PATIENT
  Age: 8 Year

DRUGS (2)
  1. METHYLPHENIDATE HCL [Suspect]
     Dosage: 10 MG 3/D
     Dates: start: 20080801
  2. METHYLPHENIDATE HCL [Suspect]
     Dosage: 10 MG 3/D
     Dates: start: 20081201

REACTIONS (2)
  - OEDEMA PERIPHERAL [None]
  - RASH GENERALISED [None]
